FAERS Safety Report 21394552 (Version 2)
Quarter: 2023Q1

REPORT INFORMATION
  Report Type: Spontaneous
  Country: BR (occurrence: BR)
  Receive Date: 20220930
  Receipt Date: 20230125
  Transmission Date: 20230418
  Serious: Yes (Hospitalization, Other)
  Sender: FDA-Public Use
  Company Number: BR-BoehringerIngelheim-2022-BI-194751

PATIENT
  Age: 8 Year
  Sex: Male

DRUGS (6)
  1. CLONIDINE [Suspect]
     Active Substance: CLONIDINE
     Indication: Sleep disorder
     Dosage: REGULARLY TAKES THE MEDICATION EVERY DAY. USES EITHER 0.100MG OR 0.150MG, DEPENDING ON AVAILABILITY.
     Route: 048
     Dates: start: 2020
  2. CLONIDINE [Suspect]
     Active Substance: CLONIDINE
     Indication: Feeling of relaxation
  3. RISPERIDONE [Concomitant]
     Active Substance: RISPERIDONE
     Indication: Autism spectrum disorder
     Dates: start: 2017
  4. RISPERIDONE [Concomitant]
     Active Substance: RISPERIDONE
     Indication: Irritability
  5. ARIPIPRAZOLE [Concomitant]
     Active Substance: ARIPIPRAZOLE
     Indication: Autism spectrum disorder
     Dates: start: 2019
  6. ARIPIPRAZOLE [Concomitant]
     Active Substance: ARIPIPRAZOLE
     Indication: Irritability

REACTIONS (8)
  - Cyanosis [Not Recovered/Not Resolved]
  - Feeling cold [Not Recovered/Not Resolved]
  - Syncope [Not Recovered/Not Resolved]
  - Hypotension [Not Recovered/Not Resolved]
  - Arrhythmia [Not Recovered/Not Resolved]
  - Product availability issue [Recovering/Resolving]
  - Product use in unapproved indication [Not Recovered/Not Resolved]
  - Off label use [Not Recovered/Not Resolved]

NARRATIVE: CASE EVENT DATE: 20221001
